FAERS Safety Report 25236204 (Version 1)
Quarter: 2025Q2

REPORT INFORMATION
  Report Type: Spontaneous
  Country: US (occurrence: US)
  Receive Date: 20250424
  Receipt Date: 20250424
  Transmission Date: 20250717
  Serious: No
  Sender: GLAXOSMITHKLINE
  Company Number: US-GSK-US2025037160

PATIENT
  Age: 77 Year
  Sex: Female

DRUGS (5)
  1. ARNUITY ELLIPTA [Suspect]
     Active Substance: FLUTICASONE FUROATE
     Indication: Pneumonitis
     Route: 048
     Dates: start: 20250326, end: 20250326
  2. OMEPRAZOLE [Concomitant]
     Active Substance: OMEPRAZOLE
     Indication: Hyperchlorhydria
  3. ZIOPTAN [Concomitant]
     Active Substance: TAFLUPROST
     Indication: Glaucoma
  4. FAMOTIDINE [Concomitant]
     Active Substance: FAMOTIDINE
     Indication: Hyperchlorhydria
  5. ESZOPICLONE [Concomitant]
     Active Substance: ESZOPICLONE
     Indication: Sleep disorder

REACTIONS (5)
  - Pyrexia [Recovering/Resolving]
  - Pulmonary pain [Recovering/Resolving]
  - Wheezing [Recovering/Resolving]
  - Cough [Not Recovered/Not Resolved]
  - Product prescribing issue [Unknown]

NARRATIVE: CASE EVENT DATE: 20250326
